FAERS Safety Report 7207168-2 (Version None)
Quarter: 2011Q1

REPORT INFORMATION
  Report Type: 
  Country: None (occurrence: None)
  Receive Date: 20110103
  Receipt Date: 20101229
  Transmission Date: 20110831
  Serious: Yes (Death, Life-Threatening, Hospitalization)
  Sender: FDA-Public Use
  Company Number: IL-ROCHE-740282

PATIENT
  Sex: Female
  Weight: 55 kg

DRUGS (5)
  1. BEVACIZUMAB [Suspect]
     Dosage: DATE OF LAST DOSE PRIOR TO SAE: 25 OCT 2010, FORM: VIAL, DOSE LEVEL: 7.5 MG/KG.
     Route: 042
     Dates: start: 20100728
  2. TRASTUZUMAB [Suspect]
     Dosage: LOADING DOSE: 8 MG/KG ON DAY 1 OF CYCLE 1 ONLY. FORM: VIAL
     Route: 042
  3. DOCETAXEL [Suspect]
     Dosage: DATE OF LAST DOSE PRIOR TO SAE: 25 OCT 2010, FORM: VIAL, DOSE LEVEL: 75 MG/M2.
     Route: 042
     Dates: start: 20100728
  4. CARBOPLATIN [Suspect]
     Dosage: DATE OF LAST DOSE PRIOR TO SAE: 25 OCT 2010, FORM: VIAL, DOSE LEVEL: 5 AUC.
     Route: 042
     Dates: start: 20100728
  5. TRASTUZUMAB [Suspect]
     Dosage: MAINTENANCE DOSE. DATE OF LAST DOSE PRIOR TO SAE: 25 OCT 2010, FORM: VIAL, DOSE LEVEL: 6 MG/KG
     Route: 042
     Dates: start: 20100728

REACTIONS (7)
  - SEPSIS [None]
  - MYOCARDIAL INFARCTION [None]
  - FEBRILE NEUTROPENIA [None]
  - CEREBRAL HAEMORRHAGE [None]
  - NEUTROPENIA [None]
  - MULTI-ORGAN FAILURE [None]
  - URINARY TRACT INFECTION [None]
